FAERS Safety Report 14386080 (Version 3)
Quarter: 2018Q1

REPORT INFORMATION
  Report Type: Report from Study
  Country: None (occurrence: TR)
  Receive Date: 20180115
  Receipt Date: 20180202
  Transmission Date: 20180509
  Serious: Yes (Hospitalization)
  Sender: FDA-Public Use
  Company Number: TR-ABBVIE-18K-161-2221681-00

PATIENT
  Age: 61 Year
  Sex: Female

DRUGS (9)
  1. MADOPAR HBS [Concomitant]
     Active Substance: BENSERAZIDE HYDROCHLORIDE\LEVODOPA
     Indication: PARKINSON^S DISEASE
     Route: 048
     Dates: start: 2014
  2. MIXOVUL [Concomitant]
     Active Substance: LIDOCAINE\METRONIDAZOLE\MICONAZOLE NITRATE
     Indication: VAGINAL INFECTION
     Route: 067
     Dates: start: 20180108
  3. TRAZODONE [Concomitant]
     Active Substance: TRAZODONE HYDROCHLORIDE
     Indication: DEPRESSION
     Route: 048
     Dates: start: 20180110
  4. DUODOPA [Suspect]
     Active Substance: CARBIDOPA\LEVODOPA
     Indication: PARKINSON^S DISEASE
     Dosage: MORNING DOSE: 8.00 ML??CONTINUOUS DOSE: 3.20 ML??EXTRA DOSE: 1.00 ML
     Route: 050
     Dates: start: 20180109, end: 20180129
  5. BENEXOL B1 B6 B12 [Concomitant]
     Indication: VITAMIN SUPPLEMENTATION
     Route: 048
     Dates: start: 20180110
  6. FOLBIOL [Concomitant]
     Active Substance: FOLIC ACID
     Indication: VITAMIN SUPPLEMENTATION
     Route: 048
     Dates: start: 20180110
  7. ESCITALOPRAM [Concomitant]
     Active Substance: ESCITALOPRAM OXALATE
     Indication: DEPRESSION
     Route: 048
     Dates: start: 20180110
  8. PK-MERZ [Concomitant]
     Active Substance: AMANTADINE
     Indication: PARKINSON^S DISEASE
     Dosage: MORNING: 2 TABLETS??NOON: 1 TABLET??AFTERNOON: 1 TABLET
     Route: 048
     Dates: start: 2017
  9. LEVOTIRON [Concomitant]
     Active Substance: LEVOTHYROXINE SODIUM
     Indication: THYROID DISORDER
     Route: 048
     Dates: start: 2007

REACTIONS (4)
  - Abdominal infection [Recovered/Resolved]
  - C-reactive protein increased [Recovered/Resolved]
  - Device occlusion [Unknown]
  - Stoma site pain [Recovered/Resolved]

NARRATIVE: CASE EVENT DATE: 20180111
